FAERS Safety Report 18007749 (Version 1)
Quarter: 2020Q3

REPORT INFORMATION
  Report Type: Spontaneous
  Country: FR (occurrence: FR)
  Receive Date: 20200710
  Receipt Date: 20200710
  Transmission Date: 20201103
  Serious: Yes (Hospitalization)
  Sender: FDA-Public Use
  Company Number: FR-MYLANLABS-2020M1061930

PATIENT
  Age: 52 Year
  Sex: Male

DRUGS (4)
  1. MELPHALAN. [Suspect]
     Active Substance: MELPHALAN
     Indication: TRANSPLANT
     Dosage: UNK, NON RENSEIGN?E
     Route: 042
     Dates: start: 20200603, end: 20200603
  2. CARMUSTINE. [Suspect]
     Active Substance: CARMUSTINE
     Indication: TRANSPLANT
     Dosage: UNK, NON RENSEIGN?E
     Route: 042
     Dates: start: 20200529, end: 20200529
  3. ETOPOSIDE. [Suspect]
     Active Substance: ETOPOSIDE
     Indication: TRANSPLANT
     Dosage: UNK, NON RENSEIGNEE
     Route: 042
     Dates: start: 20200529, end: 20200603
  4. CYTARABINE. [Suspect]
     Active Substance: CYTARABINE
     Indication: TRANSPLANT
     Dosage: UNK, NON RENSEIGN?E
     Route: 042
     Dates: start: 20200529, end: 20200603

REACTIONS (3)
  - Venoocclusive disease [Recovering/Resolving]
  - Hyperbilirubinaemia [Recovering/Resolving]
  - Jaundice [Recovering/Resolving]

NARRATIVE: CASE EVENT DATE: 20200613
